FAERS Safety Report 8809216 (Version 3)
Quarter: 2012Q4

REPORT INFORMATION
  Report Type: Spontaneous
  Country: CH (occurrence: None)
  Receive Date: 20120920
  Receipt Date: 20121109
  Transmission Date: 20130627
  Serious: Yes (Death, Hospitalization)
  Sender: FDA-Public Use
  Company Number: CH-CLINIGEN HEALTHCARE LIMITED-003001

PATIENT
  Age: 42 Year
  Sex: Male

DRUGS (12)
  1. FOSCAVIR [Suspect]
     Indication: CMV INFECTION
     Dosage: 3600.00-Mg-2.00 times per-1.0 days, Intravenous (not otherwise specified)
     Route: 042
  2. FOSCAVIR [Suspect]
     Indication: CMV INFECTION
     Route: 042
  3. FOSCAVIR [Suspect]
     Indication: CMV INFECTION
  4. FOSCAVIR [Suspect]
     Indication: CMV INFECTION
     Route: 042
  5. PREDNISONE (PREDNISONE) [Suspect]
     Indication: IMMUNOSUPPRESSION
     Route: 042
  6. CYCLOSPORINE [Suspect]
     Indication: IMMUNOSUPPRESSION
  7. AMPHOTERICIN B (AMPHOTERICIN B) [Concomitant]
     Route: 055
  8. COLISTIN (COLISTIN) [Concomitant]
  9. GANCICLOVIR (GANCICLOVIR) [Concomitant]
  10. ITRACONAZOLE (ITRACONAZOLE) [Concomitant]
  11. VALCYTE (VALCYTE) [Concomitant]
  12. TRIMETHOPRIM SULFA (TRIMETHOPRIM SULFA) [Concomitant]

REACTIONS (12)
  - Crystal nephropathy [None]
  - Renal failure [None]
  - Pericarditis [None]
  - Cardiac disorder [None]
  - Pneumonitis [None]
  - Myocarditis [None]
  - Oesophagitis [None]
  - Cytomegalovirus viraemia [None]
  - Cytomegalovirus infection [None]
  - Lung transplant rejection [None]
  - Obliterative bronchiolitis [None]
  - Renal tubular necrosis [None]
